FAERS Safety Report 4687377-7 (Version None)
Quarter: 2005Q2

REPORT INFORMATION
  Report Type: 
  Country: None (occurrence: None)
  Receive Date: 20050608
  Receipt Date: 20050523
  Transmission Date: 20051028
  Serious: Yes (Other)
  Sender: FDA-Public Use
  Company Number: 2005US002522

PATIENT
  Age: 41 Year
  Sex: Female
  Weight: 61.2 kg

DRUGS (7)
  1. ALOXI [Suspect]
     Indication: PROPHYLAXIS OF NAUSEA AND VOMITING
     Dosage: 0.25 MG, SINGLE, IV BOLUS
     Route: 040
     Dates: start: 20050418, end: 20050418
  2. FLUOROURACIL [Concomitant]
  3. MITOMYCIN [Concomitant]
  4. SALINE (SODIUM CHLORIDE) [Concomitant]
  5. ZOLOFT [Concomitant]
  6. OXYCODONE (OXYCODONE) [Concomitant]
  7. MORPHINE [Concomitant]

REACTIONS (12)
  - BLOOD UREA NITROGEN/CREATININE RATIO INCREASED [None]
  - DIZZINESS [None]
  - FATIGUE [None]
  - FEELING HOT [None]
  - GASTROINTESTINAL DISORDER [None]
  - HEART RATE INCREASED [None]
  - NIGHT SWEATS [None]
  - PYREXIA [None]
  - SUPRAVENTRICULAR EXTRASYSTOLES [None]
  - TROPONIN I INCREASED [None]
  - VENTRICULAR EXTRASYSTOLES [None]
  - VENTRICULAR TACHYCARDIA [None]
